FAERS Safety Report 23369565 (Version 1)
Quarter: 2024Q1

REPORT INFORMATION
  Report Type: Spontaneous
  Country: ID (occurrence: ID)
  Receive Date: 20240105
  Receipt Date: 20240105
  Transmission Date: 20240410
  Serious: Yes (Hospitalization, Other)
  Sender: FDA-Public Use
  Company Number: ID-QUAGEN-2023QUALIT00424

PATIENT
  Age: 34 Year
  Sex: Female

DRUGS (1)
  1. PROPYLTHIOURACIL [Suspect]
     Active Substance: PROPYLTHIOURACIL
     Indication: Hyperthyroidism
     Dosage: 3X100  MG/DAY FOR NEARLY 2 YEARS
     Route: 065

REACTIONS (2)
  - Pyoderma gangrenosum [Recovering/Resolving]
  - Exposure during pregnancy [Unknown]
